FAERS Safety Report 7665296 (Version 2)
Quarter: 2013Q3

REPORT INFORMATION
  Report Type: Spontaneous
  Country: CA (occurrence: CA)
  Receive Date: 20101112
  Receipt Date: 20130924
  Transmission Date: 20140515
  Serious: Yes (Death)
  Sender: FDA-Public Use
  Company Number: CA-RANBAXY-2010US-39242

PATIENT
  Sex: Female
  Weight: 35 kg

DRUGS (3)
  1. CLARITHROMYCIN [Suspect]
     Indication: EAR INFECTION
     Dosage: UNK
     Route: 065
  2. VALPROIC ACID [Interacting]
     Indication: CONVULSION
     Dosage: 250 MG, BID
     Route: 065
  3. HYDROCODONE [Interacting]
     Indication: NASOPHARYNGITIS
     Dosage: 1 TEASPPONFUL, TID
     Route: 048

REACTIONS (3)
  - Drug interaction [Fatal]
  - Accidental overdose [Fatal]
  - Medication error [Fatal]
